FAERS Safety Report 7958242-4 (Version None)
Quarter: 2011Q4

REPORT INFORMATION
  Report Type: 
  Country: None (occurrence: None)
  Receive Date: 20111205
  Receipt Date: 20111129
  Transmission Date: 20120403
  Serious: Yes (Death)
  Sender: FDA-Public Use
  Company Number: FR-ROCHE-1017628

PATIENT
  Age: 80 Year
  Sex: Male

DRUGS (9)
  1. EMEND [Suspect]
     Indication: PREMEDICATION
     Route: 048
     Dates: start: 20110809, end: 20110906
  2. DEXAMETHASONE [Concomitant]
     Indication: PREMEDICATION
  3. FLUOROURACIL [Suspect]
     Indication: LUNG NEOPLASM
     Dates: start: 20110809, end: 20110906
  4. SOTALOL HCL [Suspect]
     Indication: PRODUCT USED FOR UNKNOWN INDICATION
  5. AVASTIN [Suspect]
     Indication: LUNG NEOPLASM
     Route: 042
     Dates: start: 20110809, end: 20110906
  6. IRINOTECAN HCL [Suspect]
     Indication: LUNG NEOPLASM
     Route: 042
     Dates: start: 20110809, end: 20110906
  7. ONDANSETRON [Concomitant]
     Indication: PREMEDICATION
  8. LEVOLEUCOVORIN CALCIUM [Suspect]
     Indication: LUNG NEOPLASM
     Route: 042
     Dates: start: 20110809, end: 20110906
  9. ASPIRIN [Suspect]
     Indication: PRODUCT USED FOR UNKNOWN INDICATION

REACTIONS (2)
  - TRANSIENT ISCHAEMIC ATTACK [None]
  - PULMONARY EMBOLISM [None]
